FAERS Safety Report 18782307 (Version 1)
Quarter: 2021Q1

REPORT INFORMATION
  Report Type: Spontaneous
  Country: US (occurrence: US)
  Receive Date: 20210125
  Receipt Date: 20210125
  Transmission Date: 20210419
  Serious: No
  Sender: FDA-Public Use
  Company Number: US-ALLERGAN-2009944US

PATIENT
  Age: 66 Year
  Sex: Female

DRUGS (1)
  1. RESTASIS [Suspect]
     Active Substance: CYCLOSPORINE
     Indication: DRY EYE
     Dosage: 2 GTT, BID, AM AND PM
     Route: 047
     Dates: start: 20200219, end: 20200222

REACTIONS (4)
  - Pain [Unknown]
  - Renal pain [Unknown]
  - Vulvovaginal mycotic infection [Unknown]
  - Bladder disorder [Unknown]

NARRATIVE: CASE EVENT DATE: 20200223
